FAERS Safety Report 9550167 (Version 1)
Quarter: 2013Q3

REPORT INFORMATION
  Report Type: Report from Study
  Country: MX (occurrence: MX)
  Receive Date: 20130924
  Receipt Date: 20130924
  Transmission Date: 20140515
  Serious: Yes (Other)
  Sender: FDA-Public Use
  Company Number: PHHY2013MX106133

PATIENT
  Age: 70 Year
  Sex: Female

DRUGS (2)
  1. EXFORGE HCT [Suspect]
     Indication: HYPERTENSION
     Dosage: 160/5/12.5 MG, DAILY
     Route: 048
     Dates: end: 201309
  2. ACLASTA [Suspect]
     Indication: OSTEOPOROSIS
     Dosage: UNK UKN, UNK
     Route: 042
     Dates: start: 2009

REACTIONS (8)
  - Osteopenia [Unknown]
  - Osteoarthritis [Unknown]
  - Musculoskeletal discomfort [Unknown]
  - Swelling [Recovered/Resolved]
  - Fluid retention [Recovered/Resolved]
  - Paraesthesia [Recovered/Resolved]
  - Varicose vein [Unknown]
  - Vertigo [Unknown]
